FAERS Safety Report 23789562 (Version 1)
Quarter: 2024Q2

REPORT INFORMATION
  Report Type: Report from Study
  Country: PR (occurrence: PR)
  Receive Date: 20240426
  Receipt Date: 20240426
  Transmission Date: 20240716
  Serious: Yes (Other)
  Sender: FDA-Public Use
  Company Number: PR-ABBVIE-5735488

PATIENT
  Sex: Female
  Weight: 64.863 kg

DRUGS (2)
  1. HUMIRA [Suspect]
     Active Substance: ADALIMUMAB
     Indication: Rheumatoid arthritis
     Dosage: FORM STRENGTH: 40 MG
     Route: 058
  2. HUMIRA [Suspect]
     Active Substance: ADALIMUMAB

REACTIONS (8)
  - Loss of consciousness [Unknown]
  - SARS-CoV-2 test positive [Recovering/Resolving]
  - Palpitations [Recovered/Resolved]
  - Asthenia [Unknown]
  - Oropharyngeal pain [Recovering/Resolving]
  - Fall [Not Recovered/Not Resolved]
  - Chest discomfort [Recovered/Resolved]
  - Pyrexia [Recovering/Resolving]

NARRATIVE: CASE EVENT DATE: 20240101
